FAERS Safety Report 21623529 (Version 1)
Quarter: 2022Q4

REPORT INFORMATION
  Report Type: Other
  Country: AT (occurrence: None)
  Receive Date: 20221121
  Receipt Date: 20221121
  Transmission Date: 20230113
  Serious: No
  Sender: FDA-Public Use
  Company Number: AT-ROCHE-3222344

PATIENT
  Age: 56 Year
  Sex: Female
  Weight: 55 kg

DRUGS (3)
  1. OCRELIZUMAB [Suspect]
     Active Substance: OCRELIZUMAB
     Indication: Primary progressive multiple sclerosis
     Dosage: ON 26/SEP/2019, SHE RECEIVED SUBSEQUENT DOSE OF OCRELIZUMAB (BATCH/LOT NO. NOT REPORTED) 250 ML
     Route: 042
     Dates: start: 20190909
  2. OCRELIZUMAB [Suspect]
     Active Substance: OCRELIZUMAB
     Dosage: SHE RECEIVED SUBSEQUENT DOSE OF OCRELIZUMAB 500 ML ON 15/DEC/2020 (BATCH/LOT NO. B1006), 03/AUG/2021
     Route: 042
     Dates: start: 20200424
  3. LIORESAL [Concomitant]
     Active Substance: BACLOFEN
     Route: 048
     Dates: start: 20210719

REACTIONS (1)
  - COVID-19 [Recovered/Resolved]

NARRATIVE: CASE EVENT DATE: 20220701
